FAERS Safety Report 7005006-4 (Version None)
Quarter: 2010Q3

REPORT INFORMATION
  Report Type: 
  Country: None (occurrence: None)
  Receive Date: 20100921
  Receipt Date: 20100909
  Transmission Date: 20110219
  Serious: Yes (Hospitalization)
  Sender: FDA-Public Use
  Company Number: NL-AMGEN-US433635

PATIENT
  Age: 48 Year
  Sex: Female
  Weight: 71 kg

DRUGS (8)
  1. ENBREL [Suspect]
     Indication: RHEUMATOID ARTHRITIS
     Route: 058
     Dates: start: 20090201
  2. ENBREL [Suspect]
     Indication: JUVENILE ARTHRITIS
  3. PROPRANOLOL [Concomitant]
     Dosage: 3X 40 MG WHEN NECESSARY
  4. OMEPRAZOLE [Concomitant]
     Indication: PROPHYLAXIS AGAINST GASTROINTESTINAL ULCER
  5. CODEINE PHOSPHATE AND ACETAMINOPHEN [Concomitant]
     Indication: RHEUMATOID ARTHRITIS
     Dates: start: 20091101
  6. CODEINE PHOSPHATE AND ACETAMINOPHEN [Concomitant]
     Indication: JUVENILE ARTHRITIS
  7. DICLOFENAC [Concomitant]
     Indication: RHEUMATOID ARTHRITIS
  8. DICLOFENAC [Concomitant]
     Indication: JUVENILE ARTHRITIS

REACTIONS (3)
  - BASEDOW'S DISEASE [None]
  - MALAISE [None]
  - NEUTROPHIL PERCENTAGE DECREASED [None]
